FAERS Safety Report 4813048-X (Version None)
Quarter: 2005Q4

REPORT INFORMATION
  Report Type: 
  Country: None (occurrence: None)
  Receive Date: 20051028
  Receipt Date: 20051019
  Transmission Date: 20060501
  Serious: Yes (Hospitalization)
  Sender: FDA-Public Use
  Company Number: JP-JNJFOC-20050102778

PATIENT
  Sex: Female
  Weight: 40 kg

DRUGS (10)
  1. REMICADE [Suspect]
     Route: 042
  2. REMICADE [Suspect]
     Dosage: 3 MG/KG (120 MG)
     Route: 042
  3. REMICADE [Suspect]
     Indication: RHEUMATOID ARTHRITIS
     Dosage: 3 MG/KG (120 MG)
     Route: 042
  4. RHEUMATREX [Suspect]
     Indication: RHEUMATOID ARTHRITIS
     Route: 048
  5. PREDONINE [Suspect]
     Indication: RHEUMATOID ARTHRITIS
     Route: 048
  6. RIMATIL [Suspect]
     Route: 048
  7. VOLTAREN [Suspect]
     Route: 054
  8. INH [Concomitant]
     Indication: ANTIBIOTIC PROPHYLAXIS
  9. SOLITA-T [Concomitant]
  10. ADRENAL HORMONE PREPARATIONS [Concomitant]
     Indication: RHEUMATOID ARTHRITIS

REACTIONS (3)
  - INFUSION RELATED REACTION [None]
  - PNEUMONIA FUNGAL [None]
  - PYREXIA [None]
